FAERS Safety Report 6471149-7 (Version None)
Quarter: 2009Q4

REPORT INFORMATION
  Report Type: 
  Country: None (occurrence: None)
  Receive Date: 20091203
  Receipt Date: 20080429
  Transmission Date: 20100525
  Serious: Yes (Hospitalization, Other)
  Sender: FDA-Public Use
  Company Number: US-ELI_LILLY_AND_COMPANY-US200802000522

PATIENT
  Age: 77 Year
  Sex: Female

DRUGS (4)
  1. CYMBALTA [Suspect]
     Dosage: 30 MG, DAILY (1/D)
     Dates: start: 20080128, end: 20080128
  2. LEXAPRO [Concomitant]
  3. BENZODIAZEPINE DERIVATIVES [Concomitant]
  4. TRAZODONE HCL [Concomitant]

REACTIONS (2)
  - BLOOD PRESSURE SYSTOLIC INCREASED [None]
  - TRANSIENT ISCHAEMIC ATTACK [None]
